FAERS Safety Report 9574372 (Version 2)
Quarter: 2014Q3

REPORT INFORMATION
  Report Type: Spontaneous
  Country: US (occurrence: US)
  Receive Date: 20131001
  Receipt Date: 20140818
  Transmission Date: 20150326
  Serious: Yes (Hospitalization)
  Sender: FDA-Public Use
  Company Number: US-009507513-1309USA014563

PATIENT
  Sex: Female

DRUGS (1)
  1. NUVARING [Suspect]
     Active Substance: ETHINYL ESTRADIOL\ETONOGESTREL
     Indication: CONTRACEPTION
     Dosage: UNK
     Route: 067
     Dates: start: 20101227, end: 20110217

REACTIONS (9)
  - Pharyngeal cyst [Unknown]
  - Photophobia [Unknown]
  - Cerebral thrombosis [Unknown]
  - Tinnitus [Unknown]
  - Urinary tract infection [Unknown]
  - Adverse event [Unknown]
  - Phonophobia [Unknown]
  - Headache [Unknown]
  - Intracranial pressure increased [Unknown]

NARRATIVE: CASE EVENT DATE: 20110206
